FAERS Safety Report 6414775-3 (Version None)
Quarter: 2009Q4

REPORT INFORMATION
  Report Type: 
  Country: None (occurrence: None)
  Receive Date: 20091026
  Receipt Date: 20091026
  Transmission Date: 20100525
  Serious: Yes (Life-Threatening, Disabling)
  Sender: FDA-Public Use
  Company Number: None

PATIENT
  Age: 27 Year
  Sex: Female
  Weight: 54.4316 kg

DRUGS (1)
  1. CHANTIX [Suspect]
     Indication: TOBACCO USER
     Dosage: AS DIRECTED PO
     Route: 048
     Dates: start: 20080223, end: 20080401

REACTIONS (3)
  - ABNORMAL DREAMS [None]
  - DEPRESSION [None]
  - VOMITING [None]
